FAERS Safety Report 14412657 (Version 22)
Quarter: 2020Q4

REPORT INFORMATION
  Report Type: Spontaneous
  Country: CA (occurrence: CA)
  Receive Date: 20180119
  Receipt Date: 20201002
  Transmission Date: 20210113
  Serious: Yes (Hospitalization, Other)
  Sender: FDA-Public Use
  Company Number: CA-CELLTRION INC.-2017CA003548

PATIENT

DRUGS (27)
  1. INFLECTRA [Suspect]
     Active Substance: INFLIXIMAB-DYYB
     Dosage: 5 MG/KG, (OR 500 MG) EVERY 6 WEEKS
     Route: 042
     Dates: start: 20200204
  2. ENTOCORT [Concomitant]
     Active Substance: BUDESONIDE
     Dosage: 9 MG, 1X/DAY
     Route: 065
  3. PREDNISONE. [Concomitant]
     Active Substance: PREDNISONE
     Dosage: 40 MG (TAPERING DOSE)
     Dates: start: 2016
  4. INFLECTRA [Suspect]
     Active Substance: INFLIXIMAB-DYYB
     Dosage: 5 MG/KG, (OR 500 MG) EVERY 6 WEEKS
     Route: 042
     Dates: start: 20180116
  5. INFLECTRA [Suspect]
     Active Substance: INFLIXIMAB-DYYB
     Dosage: 5 MG/KG, (OR 500 MG) EVERY 6 WEEKS
     Route: 042
     Dates: start: 20180410
  6. INFLECTRA [Suspect]
     Active Substance: INFLIXIMAB-DYYB
     Dosage: 5 MG/KG, (OR 500 MG) EVERY 6 WEEKS
     Route: 042
     Dates: start: 20181214
  7. INFLECTRA [Suspect]
     Active Substance: INFLIXIMAB-DYYB
     Dosage: 5 MG/KG, (OR 500 MG) EVERY 6 WEEKS
     Route: 042
     Dates: start: 20190122
  8. INFLECTRA [Suspect]
     Active Substance: INFLIXIMAB-DYYB
     Dosage: 5 MG/KG, (OR 500 MG) EVERY 6 WEEKS
     Route: 042
     Dates: start: 20190709
  9. INFLECTRA [Suspect]
     Active Substance: INFLIXIMAB-DYYB
     Dosage: 5 MG/KG, (OR 500 MG) EVERY 6 WEEKS
     Route: 042
     Dates: start: 20191003
  10. INFLECTRA [Suspect]
     Active Substance: INFLIXIMAB-DYYB
     Dosage: 5 MG/KG, (OR 500 MG) EVERY 6 WEEKS
     Route: 042
     Dates: start: 20200811
  11. SALOFALK [Concomitant]
     Dosage: UNK
  12. INFLECTRA [Suspect]
     Active Substance: INFLIXIMAB-DYYB
     Indication: CROHN^S DISEASE
     Dosage: 500 MG EVERY 0, 2, 6 WEEKS, THEN EVERY 8 WEEKS
     Route: 042
     Dates: start: 20170301
  13. INFLECTRA [Suspect]
     Active Substance: INFLIXIMAB-DYYB
     Dosage: 5 MG/KG, (OR 500 MG) EVERY 6 WEEKS
     Route: 042
     Dates: start: 20200924
  14. INFLECTRA [Suspect]
     Active Substance: INFLIXIMAB-DYYB
     Dosage: 500 MG EVERY 0, 2, 6 WEEKS, THEN EVERY 8 WEEKS
     Route: 042
     Dates: start: 20171122
  15. INFLECTRA [Suspect]
     Active Substance: INFLIXIMAB-DYYB
     Dosage: 5 MG/KG, (OR 500 MG) EVERY 6 WEEKS
     Route: 042
     Dates: start: 20180810
  16. INFLECTRA [Suspect]
     Active Substance: INFLIXIMAB-DYYB
     Dosage: 5 MG/KG, (OR 500 MG) EVERY 6 WEEKS
     Route: 042
     Dates: start: 20191113
  17. INFLECTRA [Suspect]
     Active Substance: INFLIXIMAB-DYYB
     Dosage: 5 MG/KG, (OR 500 MG) EVERY 6 WEEKS
     Route: 042
     Dates: start: 20200409
  18. INFLECTRA [Suspect]
     Active Substance: INFLIXIMAB-DYYB
     Dosage: 5 MG/KG, (OR 500 MG) EVERY 6 WEEKS
     Route: 042
     Dates: start: 20190628
  19. BRICANYL [Concomitant]
     Active Substance: TERBUTALINE SULFATE
     Dosage: UNK
     Route: 065
  20. INFLECTRA [Suspect]
     Active Substance: INFLIXIMAB-DYYB
     Dosage: 5 MG/KG, (OR 500 MG) EVERY 6 WEEKS
     Route: 042
     Dates: start: 20180704
  21. INFLECTRA [Suspect]
     Active Substance: INFLIXIMAB-DYYB
     Dosage: 5 MG/KG, (OR 500 MG) EVERY 6 WEEKS
     Route: 042
     Dates: start: 20181030
  22. INFLECTRA [Suspect]
     Active Substance: INFLIXIMAB-DYYB
     Dosage: 5 MG/KG, (OR 500 MG) EVERY 6 WEEKS
     Route: 042
     Dates: start: 20190305
  23. INFLECTRA [Suspect]
     Active Substance: INFLIXIMAB-DYYB
     Dosage: 5 MG/KG, (OR 500 MG) EVERY 6 WEEKS
     Route: 042
     Dates: start: 20200520
  24. CALCIUM [Concomitant]
     Active Substance: CALCIUM
     Dosage: UNK
     Route: 065
  25. FLU VACCINE VII [Concomitant]
     Active Substance: INFLUENZA VIRUS VACCINE
     Indication: IMMUNISATION
     Dosage: UNK, SINGLE
     Dates: start: 20191108, end: 20191108
  26. INFLECTRA [Suspect]
     Active Substance: INFLIXIMAB-DYYB
     Dosage: 5 MG/KG, (OR 500 MG) EVERY 6 WEEKS
     Route: 042
     Dates: start: 20191218
  27. ADVAIR HFA [Concomitant]
     Active Substance: FLUTICASONE PROPIONATE\SALMETEROL XINAFOATE
     Dosage: UNK, AS NEEDED
     Route: 065

REACTIONS (26)
  - Condition aggravated [Not Recovered/Not Resolved]
  - Respiratory rate decreased [Unknown]
  - Lung disorder [Unknown]
  - Drug ineffective [Not Recovered/Not Resolved]
  - Rectal fissure [Unknown]
  - Nasal congestion [Recovering/Resolving]
  - Dyspnoea [Not Recovered/Not Resolved]
  - Cellulitis [Recovered/Resolved]
  - Fatigue [Recovering/Resolving]
  - Productive cough [Unknown]
  - Asthma [Not Recovered/Not Resolved]
  - Pulmonary fibrosis [Not Recovered/Not Resolved]
  - Acne [Unknown]
  - Otorrhoea [Unknown]
  - Off label use [Unknown]
  - Malaise [Unknown]
  - Abdominal pain upper [Unknown]
  - Nasopharyngitis [Recovering/Resolving]
  - Ear infection [Unknown]
  - Rhinorrhoea [Unknown]
  - Off label use [Unknown]
  - Ear discomfort [Not Recovered/Not Resolved]
  - Intentional product use issue [Unknown]
  - Anal fistula [Unknown]
  - Cough [Not Recovered/Not Resolved]
  - Influenza like illness [Unknown]

NARRATIVE: CASE EVENT DATE: 201703
